FAERS Safety Report 4819357-2 (Version None)
Quarter: 2005Q4

REPORT INFORMATION
  Report Type: 
  Country: None (occurrence: None)
  Receive Date: 20051031
  Receipt Date: 20050802
  Transmission Date: 20060501
  Serious: No
  Sender: FDA-Public Use
  Company Number: 2005PV000744

PATIENT
  Age: 42 Year
  Sex: Female
  Weight: 117.9352 kg

DRUGS (10)
  1. SYMLIN [Suspect]
     Indication: DIABETES MELLITUS NON-INSULIN-DEPENDENT
     Dosage: 120 MCG;TID;SC
     Route: 058
     Dates: start: 20050701, end: 20050729
  2. NOVOLOG [Concomitant]
  3. COZAAR [Concomitant]
  4. SINGULAIR ^DIECKMANN^ [Concomitant]
  5. GLUCOPHAGE [Concomitant]
  6. FORADIL [Concomitant]
  7. NOVOLOG [Concomitant]
  8. PROVENTIL [Concomitant]
  9. ASTELIN [Concomitant]
  10. AEROBID [Concomitant]

REACTIONS (3)
  - INJECTION SITE IRRITATION [None]
  - INJECTION SITE SWELLING [None]
  - INJECTION SITE WARMTH [None]
